FAERS Safety Report 25335831 (Version 1)
Quarter: 2025Q2

REPORT INFORMATION
  Report Type: Spontaneous
  Country: EC (occurrence: EC)
  Receive Date: 20250520
  Receipt Date: 20250520
  Transmission Date: 20250716
  Serious: Yes (Other)
  Sender: ROCHE
  Company Number: EC-ROCHE-10000283681

PATIENT
  Sex: Female

DRUGS (1)
  1. HERCEPTIN [Suspect]
     Active Substance: TRASTUZUMAB
     Indication: Breast cancer
     Route: 042
     Dates: start: 20241001

REACTIONS (6)
  - Haemorrhage [Unknown]
  - Diverticulum intestinal [Unknown]
  - Drug ineffective [Unknown]
  - Neoplasm [Unknown]
  - Intestinal perforation [Unknown]
  - Diarrhoea [Unknown]

NARRATIVE: CASE EVENT DATE: 20250423
